FAERS Safety Report 4470129-0 (Version None)
Quarter: 2004Q3

REPORT INFORMATION
  Report Type: 
  Country: None (occurrence: None)
  Receive Date: 20040910
  Receipt Date: 20040715
  Transmission Date: 20050211
  Serious: No
  Sender: FDA-Public Use
  Company Number: 2004224449US

PATIENT
  Sex: Female

DRUGS (1)
  1. BEXTRA [Suspect]
     Dosage: 10 MG, QD, ORAL
     Route: 048
     Dates: start: 20040714

REACTIONS (5)
  - ABDOMINAL DISTENSION [None]
  - ABDOMINAL PAIN UPPER [None]
  - ABNORMAL FAECES [None]
  - FAECES DISCOLOURED [None]
  - FLATULENCE [None]
